FAERS Safety Report 16204589 (Version 1)
Quarter: 2019Q2

REPORT INFORMATION
  Report Type: Spontaneous
  Country: US (occurrence: US)
  Receive Date: 20190416
  Receipt Date: 20190416
  Transmission Date: 20190711
  Serious: No
  Sender: FDA-Public Use
  Company Number: US-009507513-1904USA005142

PATIENT
  Age: 66 Year
  Sex: Male

DRUGS (2)
  1. JANUMET XR [Suspect]
     Active Substance: METFORMIN HYDROCHLORIDE\SITAGLIPTIN PHOSPHATE
     Indication: DIABETES MELLITUS
     Dosage: QPM (EVENING)
     Route: 048
     Dates: start: 201707
  2. CILOSTAZOL. [Concomitant]
     Active Substance: CILOSTAZOL
     Dosage: UNK

REACTIONS (3)
  - Product quality issue [Unknown]
  - No adverse event [Unknown]
  - Product residue present [Unknown]

NARRATIVE: CASE EVENT DATE: 20190409
